FAERS Safety Report 6749258-4 (Version None)
Quarter: 2010Q2

REPORT INFORMATION
  Report Type: 
  Country: None (occurrence: None)
  Receive Date: 20100601
  Receipt Date: 20100519
  Transmission Date: 20101027
  Serious: Yes (Other)
  Sender: FDA-Public Use
  Company Number: PHHY2010DE33145

PATIENT
  Sex: Female

DRUGS (3)
  1. DIOVAN [Suspect]
     Dosage: 0.5 DF, QD
     Route: 048
  2. HYDROCHLOROTHIAZIDE [Suspect]
     Dosage: UNK
  3. METOPROLOL SUCCINATE [Concomitant]

REACTIONS (4)
  - HYPOTENSION [None]
  - JOINT SWELLING [None]
  - MYALGIA [None]
  - OEDEMA PERIPHERAL [None]
